FAERS Safety Report 23549786 (Version 4)
Quarter: 2024Q2

REPORT INFORMATION
  Report Type: Spontaneous
  Country: US (occurrence: US)
  Receive Date: 20240221
  Receipt Date: 20240516
  Transmission Date: 20240716
  Serious: No
  Sender: FDA-Public Use
  Company Number: US-PFIZER INC-202400044256

PATIENT
  Age: 68 Year
  Sex: Male
  Weight: 103 kg

DRUGS (2)
  1. PROPOFOL [Suspect]
     Active Substance: PROPOFOL
     Indication: Sedation
     Dosage: 200 MG, AS NEEDED
     Route: 042
     Dates: start: 20240214, end: 20240214
  2. PROPOFOL [Suspect]
     Active Substance: PROPOFOL
     Dosage: 200 MG, AS NEEDED
     Route: 042
     Dates: start: 20240214, end: 20240214

REACTIONS (2)
  - Drug effect less than expected [Unknown]
  - Incorrect dose administered [Unknown]
